FAERS Safety Report 5587236-1 (Version None)
Quarter: 2008Q1

REPORT INFORMATION
  Report Type: 
  Country: None (occurrence: None)
  Receive Date: 20080110
  Receipt Date: 20061129
  Transmission Date: 20080703
  Serious: Yes (Hospitalization)
  Sender: FDA-Public Use
  Company Number: FR-PFIZER INC-2006147961

PATIENT
  Age: 84 Year
  Sex: Female

DRUGS (6)
  1. TAHOR [Suspect]
     Indication: HYPERCHOLESTEROLAEMIA
     Dosage: DAILY DOSE:10MG
     Route: 048
  2. LEVOTHYROX [Suspect]
     Indication: HYPOTHYROIDISM
     Dosage: DAILY DOSE:100MCG
     Route: 048
  3. ARICEPT [Suspect]
     Dosage: DAILY DOSE:10MG
     Route: 048
  4. ASPEGIC 1000 [Suspect]
     Dosage: DAILY DOSE:100MG
     Route: 048
     Dates: start: 20060523, end: 20060707
  5. LASILIX [Suspect]
     Indication: CARDIAC FAILURE
     Dosage: DAILY DOSE:40MG
     Route: 048
  6. LERCAN [Suspect]
     Indication: HYPERTENSION
     Dosage: DAILY DOSE:20MG
     Route: 048

REACTIONS (2)
  - ANAEMIA [None]
  - GASTRIC ULCER HAEMORRHAGE [None]
